FAERS Safety Report 10188719 (Version 2)
Quarter: 2019Q2

REPORT INFORMATION
  Report Type: Report from Study
  Country: US (occurrence: US)
  Receive Date: 20140522
  Receipt Date: 20190611
  Transmission Date: 20190711
  Serious: Yes (Other)
  Sender: FDA-Public Use
  Company Number: US-SA-2014SA020844

PATIENT
  Age: 78 Year
  Sex: Female

DRUGS (2)
  1. NOVOLOG [Concomitant]
     Active Substance: INSULIN ASPART
     Dosage: 35 TO 40 UNITS A DAY AFTER EACH MEAL, 3 OR SOMETIMES 4 TIMES A DAY
     Route: 065
  2. INSULIN GLARGINE [Suspect]
     Active Substance: INSULIN GLARGINE
     Indication: TYPE 2 DIABETES MELLITUS
     Dosage: 15-20 U, QD
     Route: 058

REACTIONS (4)
  - Blood glucose increased [Unknown]
  - Cataract [Recovered/Resolved]
  - Cough [Unknown]
  - Eye disorder [Not Recovered/Not Resolved]
